FAERS Safety Report 20750035 (Version 1)
Quarter: 2022Q2

REPORT INFORMATION
  Report Type: Spontaneous
  Country: US (occurrence: None)
  Receive Date: 20220425
  Receipt Date: 20220425
  Transmission Date: 20220721
  Serious: Yes (Disabling)
  Sender: FDA-Public Use
  Company Number: None

PATIENT
  Age: 23 Year
  Sex: Female
  Weight: 60.33 kg

DRUGS (5)
  1. KYLEENA [Suspect]
     Active Substance: LEVONORGESTREL
  2. DEXTROAMPHET SACCHARAT, AMPHET ASPARTATE, DEXTROAMPHET SULFATE AND AMP [Concomitant]
     Active Substance: AMPHETAMINE ASPARTATE\AMPHETAMINE SULFATE\DEXTROAMPHETAMINE SACCHARATE\DEXTROAMPHETAMINE SULFATE
  3. glucose 4 gram chewable tablet [Concomitant]
  4. adult multivitamin capsule [Concomitant]
  5. IBUPROFEN [Concomitant]
     Active Substance: IBUPROFEN

REACTIONS (13)
  - Rash papular [None]
  - Rash pruritic [None]
  - Pollakiuria [None]
  - Confusional state [None]
  - Disorientation [None]
  - Tremor [None]
  - Heart rate increased [None]
  - Tunnel vision [None]
  - Visual impairment [None]
  - Anxiety [None]
  - Panic attack [None]
  - Vaginal haemorrhage [None]
  - Muscle spasms [None]

NARRATIVE: CASE EVENT DATE: 20210621
